FAERS Safety Report 11635836 (Version 1)
Quarter: 2015Q4

REPORT INFORMATION
  Report Type: Spontaneous
  Country: US (occurrence: None)
  Receive Date: 20151015
  Receipt Date: 20151015
  Transmission Date: 20160304
  Serious: No
  Sender: FDA-Public Use
  Company Number: None

PATIENT
  Age: 58 Year
  Sex: Female

DRUGS (8)
  1. SELENIUM [Concomitant]
     Active Substance: SELENIUM
  2. FROVA [Concomitant]
     Active Substance: FROVATRIPTAN SUCCINATE
  3. CEPHALEXIN. [Concomitant]
     Active Substance: CEPHALEXIN
  4. NORTRIPTYLIN [Concomitant]
     Active Substance: NORTRIPTYLINE
  5. IBRANCE [Suspect]
     Active Substance: PALBOCICLIB
     Indication: BREAST CANCER
     Route: 048
     Dates: start: 20150526
  6. CALCIUM [Concomitant]
     Active Substance: CALCIUM
  7. SULFAMETHOX [Concomitant]
  8. LETROZOLE. [Concomitant]
     Active Substance: LETROZOLE

REACTIONS (1)
  - Pleural effusion [None]

NARRATIVE: CASE EVENT DATE: 20150801
